FAERS Safety Report 15237390 (Version 3)
Quarter: 2018Q3

REPORT INFORMATION
  Report Type: Spontaneous
  Country: DE (occurrence: DE)
  Receive Date: 20180803
  Receipt Date: 20180830
  Transmission Date: 20181010
  Serious: Yes (Hospitalization)
  Sender: FDA-Public Use
  Company Number: PHHY2018DE047024

PATIENT
  Age: 73 Year
  Sex: Female
  Weight: 64 kg

DRUGS (16)
  1. SALBUHEXAL [Concomitant]
     Active Substance: ALBUTEROL
     Indication: ASTHMA
     Dosage: 1 OT, UNK
     Route: 055
     Dates: start: 20160416
  2. DARATUMUMAB [Concomitant]
     Active Substance: DARATUMUMAB
     Indication: PLASMA CELL MYELOMA
     Dosage: 1 OT, UNK
     Route: 041
     Dates: start: 20160419, end: 20180503
  3. DARATUMUMAB [Concomitant]
     Active Substance: DARATUMUMAB
     Dosage: 1120 MG, UNK
     Route: 041
     Dates: start: 20160419, end: 20171212
  4. DONTISOLON [Concomitant]
     Indication: GINGIVITIS
     Dosage: 3 OT, UNK
     Route: 061
     Dates: start: 20170419
  5. KORODIN [Concomitant]
     Active Substance: CAMPHOR (SYNTHETIC)\MENTHOL
     Indication: DIZZINESS
     Dosage: 60 GTT, (60 DROPS)
     Route: 048
     Dates: start: 20160525
  6. NOVALGIN (METAMIZOLE SODIUM) [Concomitant]
     Active Substance: METAMIZOLE SODIUM
     Indication: NODAL OSTEOARTHRITIS
     Dosage: 60 GTT,  (DROPS)
     Route: 048
     Dates: start: 20160506
  7. VIGANTOLETTEN [Concomitant]
     Active Substance: CHOLECALCIFEROL
     Indication: VITAMIN SUPPLEMENTATION
     Dosage: 1000 IU (INTERNATIONAL UNIT)
     Route: 048
     Dates: start: 20170310
  8. DEXAMETHASONE. [Suspect]
     Active Substance: DEXAMETHASONE
     Indication: PLASMA CELL MYELOMA
     Dosage: 20 MG, QW
     Route: 048
     Dates: start: 20160419
  9. ACETYLSALICYLIC ACID [Concomitant]
     Active Substance: ASPIRIN
     Indication: THROMBOSIS PROPHYLAXIS
     Dosage: 100 MG, QD
     Route: 048
     Dates: start: 20160308
  10. DEXAMETHASONE. [Suspect]
     Active Substance: DEXAMETHASONE
     Dosage: 20 MG, QW
     Route: 048
     Dates: start: 20180524
  11. DEXAMETHASONE. [Suspect]
     Active Substance: DEXAMETHASONE
     Dosage: 1 OT, QW
     Route: 048
     Dates: end: 20180102
  12. REVLIMID [Suspect]
     Active Substance: LENALIDOMIDE
     Dosage: 21 OT, QD
     Route: 048
     Dates: end: 20180101
  13. KORODIN [Concomitant]
     Active Substance: CAMPHOR (SYNTHETIC)\MENTHOL
     Indication: HYPOTENSION
  14. REVLIMID [Suspect]
     Active Substance: LENALIDOMIDE
     Indication: PLASMA CELL MYELOMA
     Dosage: 315 MG, QD
     Route: 048
     Dates: start: 20160419
  15. MACROGOL [Concomitant]
     Active Substance: POLYETHYLENE GLYCOLS
     Indication: CONSTIPATION
     Dosage: 1 DF, QD
     Route: 048
     Dates: start: 20160416
  16. PANTOZOL [Concomitant]
     Active Substance: PANTOPRAZOLE SODIUM
     Indication: NAUSEA
     Dosage: 40 MG, UNK
     Route: 048

REACTIONS (3)
  - Neutrophil count decreased [Recovered/Resolved]
  - Corneal dystrophy [Not Recovered/Not Resolved]
  - Neutrophil count decreased [Recovered/Resolved]

NARRATIVE: CASE EVENT DATE: 20171212
